FAERS Safety Report 8433000 (Version 3)
Quarter: 2013Q1

REPORT INFORMATION
  Report Type: Spontaneous
  Country: DE (occurrence: DE)
  Receive Date: 20120229
  Receipt Date: 20130123
  Transmission Date: 20140127
  Serious: Yes (Death, Life-Threatening, Hospitalization)
  Sender: FDA-Public Use
  Company Number: DE-ROCHE-1043207

PATIENT
  Age: 70 Year
  Sex: Male
  Weight: 80 kg

DRUGS (8)
  1. ACTILYSE [Suspect]
     Indication: CEREBRAL INFARCTION
     Route: 042
     Dates: start: 20120207
  2. ACTILYSE [Suspect]
     Route: 042
  3. LISINOPRIL [Suspect]
     Indication: HYPERTENSION
     Route: 048
  4. L-THYROX [Concomitant]
     Indication: THYROID DISORDER
  5. DIAMOX [Concomitant]
     Indication: CATARACT
  6. MOVICOL [Concomitant]
     Indication: CONSTIPATION
  7. SIMVASTATIN [Concomitant]
     Indication: PROPHYLAXIS
     Route: 065
  8. ASS [Concomitant]
     Indication: CEREBRAL ISCHAEMIA
     Route: 065

REACTIONS (6)
  - Brain death [Fatal]
  - Angioedema [Recovering/Resolving]
  - Dyspnoea [Recovering/Resolving]
  - Cyanosis [Recovering/Resolving]
  - Respiratory failure [Recovering/Resolving]
  - Tracheal oedema [Recovering/Resolving]
